FAERS Safety Report 6310859-9 (Version None)
Quarter: 2009Q3

REPORT INFORMATION
  Report Type: 
  Country: None (occurrence: None)
  Receive Date: 20090804
  Receipt Date: 20090720
  Transmission Date: 20100115
  Serious: Yes (Other)
  Sender: FDA-Public Use
  Company Number: 20090720CINRY1049

PATIENT
  Age: 19 Year
  Sex: Female
  Weight: 58.0604 kg

DRUGS (4)
  1. CINRYZE [Suspect]
     Indication: HEREDITARY ANGIOEDEMA
     Dosage: (1000 UNIT, EVERY 3-4 DAYS), INTRAVENOUS
     Route: 042
     Dates: start: 20090605
  2. CINRYZE [Suspect]
     Indication: PROPHYLAXIS
     Dosage: (1000 UNIT, EVERY 3-4 DAYS), INTRAVENOUS
     Route: 042
     Dates: start: 20090605
  3. ADDERALL XR (OBETROL /01345401/) [Concomitant]
  4. YAZ [Concomitant]

REACTIONS (1)
  - B-CELL LYMPHOMA [None]
